FAERS Safety Report 14829619 (Version 1)
Quarter: 2018Q2

REPORT INFORMATION
  Report Type: Spontaneous
  Country: US (occurrence: US)
  Receive Date: 20180430
  Receipt Date: 20180430
  Transmission Date: 20180711
  Serious: No
  Sender: FDA-Public Use
  Company Number: US-PFIZER INC-2018171207

PATIENT
  Age: 25 Year
  Sex: Female

DRUGS (6)
  1. METHOTREXATE SODIUM. [Suspect]
     Active Substance: METHOTREXATE SODIUM
     Indication: ALOPECIA TOTALIS
  2. METHOTREXATE. [Suspect]
     Active Substance: METHOTREXATE
     Indication: ALOPECIA TOTALIS
  3. METHOTREXATE SODIUM. [Suspect]
     Active Substance: METHOTREXATE SODIUM
     Indication: ALOPECIA
     Dosage: UNK
  4. METHOTREXATE SODIUM. [Suspect]
     Active Substance: METHOTREXATE SODIUM
     Indication: ALOPECIA AREATA
  5. METHOTREXATE. [Suspect]
     Active Substance: METHOTREXATE
     Indication: ALOPECIA
     Dosage: UNK
     Route: 048
  6. METHOTREXATE. [Suspect]
     Active Substance: METHOTREXATE
     Indication: ALOPECIA AREATA

REACTIONS (1)
  - Drug ineffective for unapproved indication [Unknown]
